FAERS Safety Report 21984978 (Version 1)
Quarter: 2023Q1

REPORT INFORMATION
  Report Type: Spontaneous
  Country: US (occurrence: None)
  Receive Date: 20230210
  Receipt Date: 20230210
  Transmission Date: 20230417
  Serious: Yes (Life-Threatening)
  Sender: FDA-Public Use
  Company Number: None

PATIENT
  Age: 84 Year
  Sex: Male
  Weight: 63.5 kg

DRUGS (11)
  1. MEGACE [Suspect]
     Active Substance: MEGESTROL ACETATE
     Dosage: FREQUENCY : DAILY;?
     Route: 048
  2. Telmisartan 40 mg PO daily [Concomitant]
  3. atenolol 25 mg PO daily [Concomitant]
  4. Nifedipine 30 mg PO daily [Concomitant]
  5. Potassium chloride 20 meq ER PO daily [Concomitant]
  6. Dorzolamide 2% ophtalmic (1 drop into both eyes in the AM and PM) [Concomitant]
  7. latanoprost 0.005%ophtalmic  (1 drop  into both eyes TID) [Concomitant]
  8. Timolol 0.5% ophthalmic (1 drop into left eye each day) [Concomitant]
  9. Pilocarpine 2% ophthalmic (1 drop into both eyes TID) [Concomitant]
  10. Levothyroxine 50 mcg PO daily [Concomitant]
  11. Ascorbic acid1 tablet PO OD [Concomitant]

REACTIONS (1)
  - Pulmonary embolism [None]

NARRATIVE: CASE EVENT DATE: 20230202
